FAERS Safety Report 15150010 (Version 1)
Quarter: 2018Q3

REPORT INFORMATION
  Report Type: Spontaneous
  Country: US (occurrence: US)
  Receive Date: 20180716
  Receipt Date: 20180716
  Transmission Date: 20181010
  Serious: Yes (Other)
  Sender: FDA-Public Use
  Company Number: US-PFIZER INC-2018282584

PATIENT
  Age: 76 Year
  Sex: Female

DRUGS (1)
  1. METHOTREXATE SODIUM. [Suspect]
     Active Substance: METHOTREXATE SODIUM
     Dosage: 10 MG, WEEKLY
     Dates: start: 1985

REACTIONS (11)
  - Drug intolerance [Unknown]
  - Red blood cell sedimentation rate increased [Unknown]
  - Malaise [Unknown]
  - Inflammatory marker increased [Unknown]
  - Rheumatoid nodule [Unknown]
  - C-reactive protein increased [Unknown]
  - Polyarthritis [Unknown]
  - Inflammation [Unknown]
  - Joint injury [Unknown]
  - Gastrointestinal disorder [Unknown]
  - Syncope [Unknown]
